FAERS Safety Report 16073720 (Version 1)
Quarter: 2019Q1

REPORT INFORMATION
  Report Type: Spontaneous
  Country: US (occurrence: US)
  Receive Date: 20190314
  Receipt Date: 20190314
  Transmission Date: 20190418
  Serious: No
  Sender: FDA-Public Use
  Company Number: US-US WORLDMEDS, LLC-USW201812-001835

PATIENT
  Sex: Female

DRUGS (1)
  1. LUCEMYRA [Suspect]
     Active Substance: LOFEXIDINE

REACTIONS (4)
  - Seizure [Unknown]
  - Lethargy [Unknown]
  - Feeling abnormal [Unknown]
  - Intentional dose omission [Unknown]
